FAERS Safety Report 7914609-1 (Version None)
Quarter: 2011Q4

REPORT INFORMATION
  Report Type: 
  Country: None (occurrence: None)
  Receive Date: 20111115
  Receipt Date: 20111108
  Transmission Date: 20120403
  Serious: Yes (Death, Hospitalization, Other)
  Sender: FDA-Public Use
  Company Number: PHHY2011US098292

PATIENT
  Age: 17 Year
  Sex: Male

DRUGS (6)
  1. IMATINIB [Suspect]
     Indication: CHRONIC MYELOID LEUKAEMIA
     Dosage: 300 MG, DAILY
     Dates: start: 20090601
  2. IMATINIB [Interacting]
     Dosage: 300 MG, DAILY
     Dates: end: 20090701
  3. IMATINIB [Interacting]
     Dosage: 400 MG, DAILY
  4. TACROLIMUS [Interacting]
     Indication: IMMUNOSUPPRESSION
  5. IMATINIB [Interacting]
     Dosage: 300 MG, DAILY
  6. MYCOPHENOLATE MOFETIL [Concomitant]
     Indication: IMMUNOSUPPRESSION

REACTIONS (7)
  - H1N1 INFLUENZA [None]
  - COUGH [None]
  - DRUG INTERACTION [None]
  - PYREXIA [None]
  - BLOOD CREATININE INCREASED [None]
  - BLOOD ALKALINE PHOSPHATASE INCREASED [None]
  - TRANSPLANT REJECTION [None]
